FAERS Safety Report 11729539 (Version 5)
Quarter: 2016Q4

REPORT INFORMATION
  Report Type: Report from Study
  Country: CA (occurrence: CA)
  Receive Date: 20151112
  Receipt Date: 20161221
  Transmission Date: 20170206
  Serious: Yes (Other)
  Sender: FDA-Public Use
  Company Number: CA-JNJFOC-20151109299

PATIENT
  Sex: Male

DRUGS (1)
  1. IMBRUVICA [Suspect]
     Active Substance: IBRUTINIB
     Indication: CHRONIC LYMPHOCYTIC LEUKAEMIA
     Route: 048
     Dates: start: 20151017, end: 201611

REACTIONS (4)
  - Haemoglobin decreased [Recovering/Resolving]
  - Nasopharyngitis [Recovered/Resolved]
  - Skin cancer [Recovering/Resolving]
  - Infection [Not Recovered/Not Resolved]
